FAERS Safety Report 8503551-3 (Version None)
Quarter: 2012Q3

REPORT INFORMATION
  Report Type: 
  Country: None (occurrence: None)
  Receive Date: 20120702
  Receipt Date: 20120611
  Transmission Date: 20120928
  Serious: Yes (Other)
  Sender: FDA-Public Use
  Company Number: COL_11784_2012

PATIENT
  Age: 56 Year
  Sex: Female

DRUGS (27)
  1. ENOXAPARIN [Concomitant]
  2. CHLORHEXIDINE GLUCONATE [Suspect]
     Dosage: (ORAL)
     Route: 048
  3. CEFOTAXIME SODIUM [Concomitant]
  4. CLONIDINE [Concomitant]
  5. RANITIDINE [Concomitant]
  6. ADDIPHOS /01215501/ [Concomitant]
  7. DIAZEPAM [Concomitant]
  8. LACTULOSE [Concomitant]
  9. LAMOTRIGINE [Concomitant]
  10. PABRINEX /00041801/ [Concomitant]
  11. POTASSIUM CHLORIDE [Concomitant]
  12. YELLOW SOFT PARAFFIN (YELLOW SOFT PARAFFIN) [Suspect]
  13. AMISULPRIDE [Concomitant]
  14. CEFTRIAXONE [Concomitant]
  15. KAY CIEL DURA-TABS [Concomitant]
  16. PHENYTOIN SODIUM [Concomitant]
  17. ACYCLOVIR [Concomitant]
  18. INSULIN HUMAN [Concomitant]
  19. AMOXICILLIN [Concomitant]
  20. SENNA /00142201/ [Concomitant]
  21. ALFENTANIL [Concomitant]
  22. LORAZEPAM [Concomitant]
  23. METRONIDAZOLE [Concomitant]
  24. PROPOFOL [Concomitant]
  25. QUETIAPINE [Concomitant]
  26. SODIUM CHLORIDE [Concomitant]
  27. THIAMINE [Concomitant]

REACTIONS (1)
  - ANAPHYLACTIC REACTION [None]
